FAERS Safety Report 4975750-9 (Version None)
Quarter: 2006Q2

REPORT INFORMATION
  Report Type: 
  Country: None (occurrence: None)
  Receive Date: 20060411
  Receipt Date: 20060323
  Transmission Date: 20061013
  Serious: Yes (Death, Hospitalization)
  Sender: FDA-Public Use
  Company Number: US200512002327

PATIENT
  Age: 84 Year
  Sex: Male
  Weight: 90.2 kg

DRUGS (13)
  1. PEMETREXED(PEMETREXED) VIAL [Suspect]
     Indication: NON-SMALL CELL LUNG CANCER
     Dosage: 1060 MG/M2, OTHER, INTRAVENOUS; 900 MG/M2, OTHER, INTRAVENOUS
     Route: 042
     Dates: start: 20050815, end: 20050929
  2. PEMETREXED(PEMETREXED) VIAL [Suspect]
     Indication: NON-SMALL CELL LUNG CANCER
     Dosage: 1060 MG/M2, OTHER, INTRAVENOUS; 900 MG/M2, OTHER, INTRAVENOUS
     Route: 042
     Dates: start: 20051110, end: 20051128
  3. GEMCITABINE HYDROCHLORIDE (GEMCITABINE HYDROCHLORIDE) VIAL [Suspect]
     Indication: NON-SMALL CELL LUNG CANCER
     Dosage: SEE IMAGE
     Route: 042
     Dates: start: 20051110, end: 20051128
  4. FOLIC ACID [Concomitant]
  5. CYANOCOBALAMIN [Concomitant]
  6. POTASSIUM CHLORIDE [Concomitant]
  7. MEGACE [Concomitant]
  8. DEXAMETHASONE [Concomitant]
  9. LASIX [Concomitant]
  10. ZOFRAN [Concomitant]
  11. CISPLATIN [Suspect]
     Indication: NON-SMALL CELL LUNG CANCER
     Dosage: 63.6 MG/M2, OTHER,
     Dates: start: 20050815, end: 20050929
  12. *RADIATION(*RADIATION) UNKNOWN [Suspect]
     Indication: NON-SMALL CELL LUNG CANCER
     Dosage: 180, OTHER,; 200, OTHER
     Dates: start: 20050815, end: 20050930
  13. *RADIATION(*RADIATION) UNKNOWN [Suspect]
     Indication: NON-SMALL CELL LUNG CANCER
     Dosage: 180, OTHER,; 200, OTHER
     Dates: start: 20050815

REACTIONS (3)
  - ACUTE RESPIRATORY DISTRESS SYNDROME [None]
  - LUNG CONSOLIDATION [None]
  - PNEUMONIA [None]
